FAERS Safety Report 18532541 (Version 1)
Quarter: 2020Q4

REPORT INFORMATION
  Report Type: Report from Study
  Country: IT (occurrence: IT)
  Receive Date: 20201123
  Receipt Date: 20201123
  Transmission Date: 20210114
  Serious: Yes (Other)
  Sender: FDA-Public Use
  Company Number: IT-TEVA-2020-IT-1850696

PATIENT
  Age: 76 Year
  Sex: Female

DRUGS (5)
  1. BISOPROLOL FUMARATE. [Suspect]
     Active Substance: BISOPROLOL FUMARATE
     Indication: ATRIAL FIBRILLATION
     Dosage: 1.25MG
     Route: 048
  2. CRESTOR 10 MG COMPRESSE RIVESTITE CON FILM [Concomitant]
     Indication: DYSLIPIDAEMIA
     Dosage: 1 DOSAGE FORMS
     Route: 048
  3. VASORETIC [Concomitant]
     Active Substance: ENALAPRIL MALEATE\HYDROCHLOROTHIAZIDE
     Indication: HYPERTENSION
     Dosage: 1 DOSAGE FORMS
     Route: 048
  4. RYTMONORM [Suspect]
     Active Substance: PROPAFENONE
     Indication: ATRIAL FIBRILLATION
     Dosage: 2 DOSAGE FORMS
     Route: 048
  5. LIXIANA 60 MG FILM-COATED TABLETS [Concomitant]
     Active Substance: EDOXABAN TOSYLATE
     Indication: ATRIAL FIBRILLATION
     Dosage: 1 DOSAGE FORMS
     Route: 048

REACTIONS (1)
  - Tachycardia [Recovering/Resolving]

NARRATIVE: CASE EVENT DATE: 20200914
